FAERS Safety Report 6264533-8 (Version None)
Quarter: 2009Q3

REPORT INFORMATION
  Report Type: 
  Country: None (occurrence: None)
  Receive Date: 20090710
  Receipt Date: 20090709
  Transmission Date: 20100115
  Serious: Yes (Hospitalization)
  Sender: FDA-Public Use
  Company Number: LV-ROCHE-598480

PATIENT
  Sex: Male
  Weight: 0.5 kg

DRUGS (9)
  1. METHOXY POLYETHYLENE GLYCOL-EPOETIN BETA [Suspect]
     Dosage: DOSAGE AS PER PROTOCOL.
     Dates: start: 20080528, end: 20080917
  2. METHOXY POLYETHYLENE GLYCOL-EPOETIN BETA [Suspect]
     Dates: start: 20090226
  3. ENALAPRILUM [Concomitant]
     Indication: HYPERTENSION
     Dates: end: 20081020
  4. CALCIUM [Concomitant]
     Indication: HYPERPARATHYROIDISM
     Dates: start: 20070924
  5. CALCITRIOLUM [Concomitant]
     Indication: HYPERPARATHYROIDISM
     Dates: start: 20080407, end: 20080819
  6. CALCITRIOLUM [Concomitant]
     Dates: start: 20080820, end: 20081020
  7. MAGLEK B6 [Concomitant]
     Dosage: DRUG NAME REPORTED AS MAGNED-B6
     Dates: start: 20081020
  8. BISOPROLOL FUMARATE [Concomitant]
     Dates: start: 20090219, end: 20090222
  9. AMOXICILLIN [Concomitant]
     Dates: start: 20090220, end: 20090223

REACTIONS (1)
  - INTRA-UTERINE DEATH [None]
